FAERS Safety Report 18235702 (Version 1)
Quarter: 2020Q3

REPORT INFORMATION
  Report Type: Spontaneous
  Country: US (occurrence: US)
  Receive Date: 20200905
  Receipt Date: 20200905
  Transmission Date: 20201103
  Serious: No
  Sender: FDA-Public Use
  Company Number: US-SA-2020SA240166

PATIENT

DRUGS (2)
  1. LANTUS [Suspect]
     Active Substance: INSULIN GLARGINE
     Dosage: 40 UNITS AT BEDTIME
     Route: 065
  2. NOVOLOG [Suspect]
     Active Substance: INSULIN ASPART
     Dosage: 26 UNITS FOUR TIMES A DAY AFTER EACH MEAL ^SOMETIMES 3 TIMES A DAY^
     Route: 058

REACTIONS (1)
  - Blood glucose increased [Unknown]
